FAERS Safety Report 8760254 (Version 1)
Quarter: 2012Q4

REPORT INFORMATION
  Report Type: Spontaneous
  Country: US (occurrence: None)
  Receive Date: 20120828
  Receipt Date: 20120828
  Transmission Date: 20130627
  Serious: No
  Sender: FDA-Public Use
  Company Number: None

PATIENT
  Age: 61 Year
  Sex: Female
  Weight: 86.18 kg

DRUGS (1)
  1. VENLAFAXINE [Suspect]
     Indication: DEPRESSION
     Dates: start: 20120601

REACTIONS (7)
  - Drug ineffective [None]
  - Depression [None]
  - Back pain [None]
  - Fatigue [None]
  - Crying [None]
  - Activities of daily living impaired [None]
  - Apathy [None]
